FAERS Safety Report 8616192-4 (Version None)
Quarter: 2012Q3

REPORT INFORMATION
  Report Type: 
  Country: None (occurrence: None)
  Receive Date: 20120809
  Receipt Date: 20120727
  Transmission Date: 20120928
  Serious: Yes (Hospitalization)
  Sender: FDA-Public Use
  Company Number: AUR-APL-2012-03381

PATIENT
  Age: 61 Year
  Sex: Male

DRUGS (2)
  1. SINEMET [Concomitant]
  2. MINOCYCLINE HCL [Suspect]
     Indication: ACNE
     Dosage: 200 MG (100 MG,2 IN 1 D),ORAL
     Route: 048

REACTIONS (7)
  - FALL [None]
  - BLOOD PRESSURE SYSTOLIC INCREASED [None]
  - FATIGUE [None]
  - NORMOCHROMIC NORMOCYTIC ANAEMIA [None]
  - DYSPNOEA [None]
  - CYANOSIS [None]
  - SKIN DISCOLOURATION [None]
